FAERS Safety Report 10029675 (Version 1)
Quarter: 2014Q1

REPORT INFORMATION
  Report Type: Spontaneous
  Country: US (occurrence: None)
  Receive Date: 20140321
  Receipt Date: 20140321
  Transmission Date: 20141002
  Serious: Yes (Disabling)
  Sender: FDA-Public Use
  Company Number: None

PATIENT
  Age: 17 Year
  Sex: Female
  Weight: 56.7 kg

DRUGS (1)
  1. NEXPLANON [Suspect]

REACTIONS (5)
  - Menorrhagia [None]
  - Abdominal pain upper [None]
  - Malaise [None]
  - Anaemia [None]
  - Weight decreased [None]
